FAERS Safety Report 5299924-5 (Version None)
Quarter: 2007Q3

REPORT INFORMATION
  Report Type: 
  Country: None (occurrence: None)
  Receive Date: 20070410
  Receipt Date: 20070330
  Transmission Date: 20080115
  Serious: Yes (Other)
  Sender: FDA-Public Use
  Company Number: B0460836A

PATIENT
  Age: 12 Year
  Sex: Male

DRUGS (1)
  1. RELENZA [Suspect]
     Indication: INFLUENZA
     Dosage: 10 MG TWICE PER DAY INHALED
     Route: 055
     Dates: start: 20070222, end: 20070223

REACTIONS (6)
  - ABNORMAL BEHAVIOUR [None]
  - AGITATION [None]
  - DELIRIUM [None]
  - HALLUCINATION [None]
  - INSOMNIA [None]
  - RESTLESSNESS [None]
